FAERS Safety Report 7775371-9 (Version None)
Quarter: 2011Q3

REPORT INFORMATION
  Report Type: 
  Country: None (occurrence: None)
  Receive Date: 20110923
  Receipt Date: 20110913
  Transmission Date: 20111222
  Serious: Yes (Other)
  Sender: FDA-Public Use
  Company Number: PHHY2011BR81853

PATIENT
  Sex: Male

DRUGS (9)
  1. DIOVAN [Suspect]
     Indication: HYPERTENSION
     Dosage: 320 MG (01 TABLET DAILY)
     Dates: start: 20070101
  2. ASPIRIN [Concomitant]
     Indication: ANTICOAGULANT THERAPY
     Dosage: 100 MG (1 TABLET DAILY)
     Route: 048
     Dates: start: 20070101
  3. GALVUS MET [Concomitant]
     Indication: DIABETES MELLITUS
     Dosage: 1 DF (850/50MG) DAILY
     Dates: start: 20090101
  4. SERTRALINE HYDROCHLORIDE [Concomitant]
     Indication: DEPRESSION
     Dosage: 85 MG, (1 TABLET DAILY)
     Dates: start: 20060101
  5. METOPROLOL SUCCINATE [Concomitant]
     Indication: HYPERTENSION
     Dosage: 1 DF TABLET DAILY
     Dates: start: 20070101
  6. SIMVASTATIN [Concomitant]
     Indication: HYPERTENSION
     Dosage: 20 MG, (1 TABLET DAILY)
     Route: 048
     Dates: start: 20070101
  7. INSULIN [Concomitant]
     Dosage: 30 U DAILY
     Dates: start: 20050101
  8. AMIODARONE HYDROCHLORIDE [Concomitant]
     Indication: ARRHYTHMIA
     Dosage: 300 MG, (1 TABLET DAILY)
     Route: 048
     Dates: start: 20100101
  9. LASIX [Concomitant]
     Indication: DIURETIC THERAPY
     Dosage: 40 MG (1 TABLET DAILY)
     Route: 048

REACTIONS (1)
  - ARRHYTHMIA [None]
